FAERS Safety Report 15815139 (Version 1)
Quarter: 2019Q1

REPORT INFORMATION
  Report Type: Spontaneous
  Country: US (occurrence: US)
  Receive Date: 20190112
  Receipt Date: 20190112
  Transmission Date: 20190417
  Serious: No
  Sender: FDA-Public Use
  Company Number: US-JNJFOC-20181229737

PATIENT
  Sex: Male
  Weight: 131.54 kg

DRUGS (1)
  1. TYLENOL EXTRA STRENGTH [Suspect]
     Active Substance: ACETAMINOPHEN
     Indication: ARTHRALGIA
     Dosage: 1 OR TWO PILLS 3 OR 4 TIMES A MONTH
     Route: 048

REACTIONS (1)
  - Incorrect dose administered [Unknown]
